FAERS Safety Report 9797854 (Version 1)
Quarter: 2014Q1

REPORT INFORMATION
  Report Type: Spontaneous
  Country: DE (occurrence: DE)
  Receive Date: 20140106
  Receipt Date: 20140106
  Transmission Date: 20141002
  Serious: Yes (Hospitalization)
  Sender: FDA-Public Use
  Company Number: PHHY2013DE153812

PATIENT
  Age: 48 Year
  Sex: Male

DRUGS (7)
  1. GILENYA [Suspect]
     Route: 048
     Dates: start: 2013
  2. TYSABRI [Suspect]
     Indication: MULTIPLE SCLEROSIS
     Dosage: 300 MG, UNK
     Route: 042
     Dates: start: 200707, end: 20130722
  3. LYRICA [Concomitant]
     Indication: PROPHYLAXIS
     Dosage: 25 MG, UNK
     Dates: start: 20131127
  4. MIRTAZAPIN [Concomitant]
     Dosage: 15 MG, UNK
     Dates: start: 20121022, end: 20131201
  5. DULCOLAX [Concomitant]
     Indication: CONSTIPATION
     Dates: start: 20131202
  6. MONO EMBOLEX [Concomitant]
     Indication: THROMBOSIS PROPHYLAXIS
     Dosage: 3000 IU, UNK
     Route: 058
     Dates: start: 20131121
  7. METFORMIN [Concomitant]
     Indication: DIABETES MELLITUS
     Dosage: 1000 MG, UNK

REACTIONS (3)
  - Immune reconstitution inflammatory syndrome [Recovering/Resolving]
  - Blood brain barrier defect [Unknown]
  - Central nervous system lesion [Unknown]
